FAERS Safety Report 4855995-9 (Version None)
Quarter: 2005Q4

REPORT INFORMATION
  Report Type: 
  Country: None (occurrence: None)
  Receive Date: 20051214
  Receipt Date: 20051206
  Transmission Date: 20060501
  Serious: Yes (Life-Threatening, Hospitalization)
  Sender: FDA-Public Use
  Company Number: 2005JP002171

PATIENT
  Age: 31 Year
  Sex: Female

DRUGS (23)
  1. PROGRAF [Suspect]
     Indication: BONE MARROW TRANSPLANT
     Dosage: SEE IMAGE
     Dates: end: 20041130
  2. PROGRAF [Suspect]
     Indication: BONE MARROW TRANSPLANT
     Dosage: SEE IMAGE
     Dates: start: 20041204, end: 20041207
  3. PROGRAF [Suspect]
     Indication: BONE MARROW TRANSPLANT
     Dosage: SEE IMAGE
     Dates: start: 20041208, end: 20041210
  4. PROGRAF [Suspect]
     Indication: BONE MARROW TRANSPLANT
     Dosage: SEE IMAGE
     Dates: start: 20041211, end: 20050307
  5. PROGRAF [Suspect]
     Indication: BONE MARROW TRANSPLANT
     Dosage: SEE IMAGE
     Dates: start: 19980101
  6. PROGRAF [Suspect]
     Indication: BONE MARROW TRANSPLANT
     Dosage: SEE IMAGE
     Dates: start: 20050308
  7. CELLCEPT [Suspect]
     Dosage: 500 MG, /D,
     Dates: start: 20041202
  8. PREDNISOLONE [Suspect]
     Indication: BONE MARROW TRANSPLANT
     Dosage: SEE IMAGE
     Dates: start: 19980101
  9. PREDNISOLONE [Suspect]
     Indication: BONE MARROW TRANSPLANT
     Dosage: SEE IMAGE
     Dates: start: 20041211
  10. SIMULECT [Concomitant]
  11. METHYLPREDNISOLONE (METHYLPREDNISOLONE) INJECTION [Concomitant]
  12. UNASYN S (AMPICILLIN SODIUM, SULBACTAM SODIUM) INJECTION [Concomitant]
  13. BACTRAMIN (SULFAMETHOXAZOLE, TRIMETHOPRIM) INJECTION [Concomitant]
  14. PRODIF (FOSFLUCONAZOLE) INJECTION [Concomitant]
  15. FUNGUARD (MICAFUNGIN) INJECTION [Concomitant]
  16. GASTER (FAMOTIDINE) INJECTION [Concomitant]
  17. PERDIPINE (NICARDIPINE) INJECTION [Concomitant]
  18. HERBESSER ^TANABE^ (DILTIAZEM HYDROCHLORIDE) INJECTION [Concomitant]
  19. ZOVIRAX ^BURROUGHS^ (ACICLOVIR) INJECTION [Concomitant]
  20. HERBESSOR R (DILTIAZEM HYDROCHLORIDE) PER ORAL NOS [Concomitant]
  21. GASTER D ORODISPERSABLE CR TABLET [Concomitant]
  22. BAKTAR (SULFAMETHOXAZOLE, TRIMETHOPRIM) GRANULE [Concomitant]
  23. ITRIZOLE (ITRACONAZOLE) PER ORAL NOS [Concomitant]

REACTIONS (8)
  - COMPLICATIONS OF TRANSPLANTED LUNG [None]
  - CYTOMEGALOVIRUS VIRAEMIA [None]
  - EMPHYSEMA [None]
  - HYPERCHOLESTEROLAEMIA [None]
  - HYPERTRIGLYCERIDAEMIA [None]
  - PNEUMATOSIS INTESTINALIS [None]
  - PNEUMOMEDIASTINUM [None]
  - TREMOR [None]
